FAERS Safety Report 8086795-7 (Version None)
Quarter: 2012Q1

REPORT INFORMATION
  Report Type: 
  Country: None (occurrence: None)
  Receive Date: 20120128
  Receipt Date: 20110614
  Transmission Date: 20120608
  Serious: No
  Sender: FDA-Public Use
  Company Number: US-ABBOTT-11P-163-0732180-00

PATIENT
  Sex: Female
  Weight: 72.186 kg

DRUGS (1)
  1. HUMIRA [Suspect]
     Indication: RHEUMATOID ARTHRITIS
     Route: 058
     Dates: start: 20100901

REACTIONS (3)
  - POOR QUALITY DRUG ADMINISTERED [None]
  - ARTHRALGIA [None]
  - LIQUID PRODUCT PHYSICAL ISSUE [None]
